FAERS Safety Report 10020911 (Version 1)
Quarter: 2014Q1

REPORT INFORMATION
  Report Type: Spontaneous
  Country: US (occurrence: None)
  Receive Date: 20140318
  Receipt Date: 20140318
  Transmission Date: 20141002
  Serious: Yes (Death, Hospitalization)
  Sender: FDA-Public Use
  Company Number: None

PATIENT
  Age: 14 Year
  Sex: Male
  Weight: 70 kg

DRUGS (2)
  1. DAUNORUBICIN [Suspect]
     Dates: end: 20140305
  2. PEG-L-ASPARAGINASE (PEGASPARGASE, ONCOSPAR) [Suspect]
     Dates: end: 20140222

REACTIONS (11)
  - Metabolic acidosis [None]
  - Anaemia [None]
  - Coagulopathy [None]
  - Escherichia infection [None]
  - Renal failure acute [None]
  - Hypotension [None]
  - Hyperglycaemia [None]
  - Dehydration [None]
  - Neutropenia [None]
  - Hypoxia [None]
  - General physical health deterioration [None]
